FAERS Safety Report 8902582 (Version 3)
Quarter: 2013Q1

REPORT INFORMATION
  Report Type: Spontaneous
  Country: GB (occurrence: GB)
  Receive Date: 20121112
  Receipt Date: 20130321
  Transmission Date: 20140127
  Serious: Yes (Death, Hospitalization, Other)
  Sender: FDA-Public Use
  Company Number: PHHY2012GB103033

PATIENT
  Age: 70 Year
  Sex: Female
  Weight: 82.6 kg

DRUGS (3)
  1. RISPERIDONE [Suspect]
  2. MIRTAZAPINE [Suspect]
  3. DIAZEPAM [Suspect]

REACTIONS (17)
  - Neuroleptic malignant syndrome [Fatal]
  - Coma [Fatal]
  - Paralysis [Fatal]
  - Muscle rigidity [Fatal]
  - Hypokinesia [Fatal]
  - Catatonia [Fatal]
  - Bedridden [Fatal]
  - Pyrexia [Fatal]
  - Sedation [Fatal]
  - Dehydration [Fatal]
  - Aphagia [Fatal]
  - Fluid intake reduced [Fatal]
  - Cholecystitis [Not Recovered/Not Resolved]
  - Urinary tract infection [Not Recovered/Not Resolved]
  - Swelling face [Not Recovered/Not Resolved]
  - Local swelling [Not Recovered/Not Resolved]
  - Drug interaction [Not Recovered/Not Resolved]
